FAERS Safety Report 4324879-7 (Version None)
Quarter: 2004Q1

REPORT INFORMATION
  Report Type: 
  Country: None (occurrence: None)
  Receive Date: 20040326
  Receipt Date: 20040216
  Transmission Date: 20041129
  Serious: Yes (Death, Hospitalization, Other)
  Sender: FDA-Public Use
  Company Number: PHBS2004ES02261

PATIENT
  Age: 59 Year
  Sex: Female

DRUGS (10)
  1. NEORAL [Suspect]
     Indication: RENAL TRANSPLANT
     Dosage: 600 MG/D
     Route: 048
     Dates: start: 20031204
  2. NEORAL [Suspect]
     Dosage: 75 MG/D
     Route: 048
     Dates: end: 20040127
  3. MYCOPHENOLATE MOFETIL [Concomitant]
  4. PREDNISONE [Concomitant]
  5. PANTOPRAZOLE [Concomitant]
  6. FUROSEMIDE [Concomitant]
  7. AMLODIPINE [Concomitant]
  8. GLIMEPIRIDE [Concomitant]
  9. ROSIGLITAZONE MALEATE [Concomitant]
  10. INSULIN [Concomitant]

REACTIONS (17)
  - ABDOMINAL PAIN UPPER [None]
  - ASTHENIA [None]
  - CHOLECYSTITIS [None]
  - COAGULOPATHY [None]
  - DIABETES MELLITUS INADEQUATE CONTROL [None]
  - DRUG LEVEL INCREASED [None]
  - FEELING ABNORMAL [None]
  - GALLBLADDER OPERATION [None]
  - GALLBLADDER PERFORATION [None]
  - GASTROINTESTINAL HAEMORRHAGE [None]
  - GENERALISED OEDEMA [None]
  - MALAISE [None]
  - MULTI-ORGAN FAILURE [None]
  - NERVOUSNESS [None]
  - POST PROCEDURAL COMPLICATION [None]
  - RESPIRATORY FAILURE [None]
  - TREMOR [None]
